FAERS Safety Report 8061504-6 (Version None)
Quarter: 2012Q1

REPORT INFORMATION
  Report Type: 
  Country: None (occurrence: None)
  Receive Date: 20120120
  Receipt Date: 20111214
  Transmission Date: 20120608
  Serious: No
  Sender: FDA-Public Use
  Company Number: US-ALLERGAN-1116388US

PATIENT
  Sex: Female

DRUGS (2)
  1. REFRESH LIQUIGEL OPHTHALMIC [Suspect]
     Indication: DRY EYE
     Dosage: 3 GTT, QD
     Route: 047
  2. RESTASIS [Suspect]
     Indication: DRY EYE
     Dosage: UNK

REACTIONS (2)
  - VISION BLURRED [None]
  - FOREIGN BODY SENSATION IN EYES [None]
